FAERS Safety Report 11986686 (Version 2)
Quarter: 2016Q1

REPORT INFORMATION
  Report Type: Spontaneous
  Country: US (occurrence: US)
  Receive Date: 20160202
  Receipt Date: 20160216
  Transmission Date: 20160526
  Serious: No
  Sender: FDA-Public Use
  Company Number: US-009507513-1602USA000397

PATIENT
  Sex: Female

DRUGS (1)
  1. ISENTRESS [Suspect]
     Active Substance: RALTEGRAVIR POTASSIUM
     Dosage: 400 MG
     Route: 048

REACTIONS (4)
  - Nasopharyngitis [Unknown]
  - Abdominal discomfort [Unknown]
  - Hepatitis C [Unknown]
  - Cognitive disorder [Unknown]
